FAERS Safety Report 19596750 (Version 1)
Quarter: 2021Q3

REPORT INFORMATION
  Report Type: Report from Study
  Country: KR (occurrence: KR)
  Receive Date: 20210722
  Receipt Date: 20210722
  Transmission Date: 20211014
  Serious: Yes (Hospitalization)
  Sender: FDA-Public Use
  Company Number: KR-JNJFOC-20210700013

PATIENT
  Age: 60 Year
  Sex: Male
  Weight: 67 kg

DRUGS (9)
  1. AMIVANTAMAB. [Suspect]
     Active Substance: AMIVANTAMAB
     Dosage: C1D2
     Route: 042
     Dates: start: 20210615, end: 20210615
  2. AMIVANTAMAB. [Suspect]
     Active Substance: AMIVANTAMAB
     Dosage: C1D8; MOST RECENT DOSE (C1D15) ON 28/JUN/2021
     Route: 042
     Dates: start: 20210621
  3. LASIX [Concomitant]
     Active Substance: FUROSEMIDE
     Indication: PRODUCT USED FOR UNKNOWN INDICATION
     Route: 048
     Dates: start: 20210628
  4. AMIVANTAMAB. [Suspect]
     Active Substance: AMIVANTAMAB
     Indication: NON-SMALL CELL LUNG CANCER
     Dosage: C1D1
     Route: 042
     Dates: start: 20210614, end: 20210614
  5. XARELTO [Concomitant]
     Active Substance: RIVAROXABAN
     Indication: PRODUCT USED FOR UNKNOWN INDICATION
     Route: 048
     Dates: start: 20210621
  6. BANAN [Concomitant]
     Active Substance: CEFPODOXIME PROXETIL
     Indication: PRODUCT USED FOR UNKNOWN INDICATION
     Route: 048
     Dates: start: 20210628
  7. ALDACTONE [Concomitant]
     Active Substance: SPIRONOLACTONE
     Indication: PRODUCT USED FOR UNKNOWN INDICATION
     Route: 048
     Dates: start: 20210628
  8. DOXYCYCLINE. [Concomitant]
     Active Substance: DOXYCYCLINE
     Indication: PRODUCT USED FOR UNKNOWN INDICATION
     Route: 048
     Dates: start: 20210614
  9. CRAVIT [Concomitant]
     Active Substance: LEVOFLOXACIN
     Indication: PRODUCT USED FOR UNKNOWN INDICATION
     Route: 048
     Dates: start: 20210628

REACTIONS (1)
  - Pneumonia cytomegaloviral [Recovering/Resolving]

NARRATIVE: CASE EVENT DATE: 20210628
